FAERS Safety Report 8358409-X (Version None)
Quarter: 2012Q2

REPORT INFORMATION
  Report Type: 
  Country: None (occurrence: None)
  Receive Date: 20120514
  Receipt Date: 20120508
  Transmission Date: 20120825
  Serious: Yes (Other)
  Sender: FDA-Public Use
  Company Number: CH-BAYER-2012-044872

PATIENT
  Sex: Female

DRUGS (3)
  1. TILUR [Suspect]
     Dosage: 90 MG, QD
     Dates: start: 20110101, end: 20110718
  2. ASPIRIN [Suspect]
     Dosage: 500 MG, QD
     Dates: start: 20110101, end: 20110718
  3. XARELTO [Suspect]
     Dosage: 10 MG, QD
     Dates: start: 20110101, end: 20110718

REACTIONS (1)
  - NO ADVERSE EVENT [None]
